FAERS Safety Report 9092678 (Version 1)
Quarter: 2013Q1

REPORT INFORMATION
  Report Type: Spontaneous
  Country: US (occurrence: US)
  Receive Date: 20130218
  Receipt Date: 20130218
  Transmission Date: 20140127
  Serious: No
  Sender: FDA-Public Use
  Company Number: US-ABBOTT-13P-163-1039548-00

PATIENT
  Age: 67 Year
  Sex: Female
  Weight: 70.82 kg

DRUGS (8)
  1. SIMCOR 500/40 [Suspect]
     Indication: BLOOD CHOLESTEROL INCREASED
     Dosage: 500/40
     Dates: start: 20130107
  2. METFORMIN [Concomitant]
     Indication: DIABETES MELLITUS
  3. ATENOLOL [Concomitant]
     Indication: HYPERTENSION
  4. TRIAMTERENE [Concomitant]
     Indication: FLUID RETENTION
  5. QUINAPRIL [Concomitant]
     Indication: HYPERTENSION
  6. NORVASC [Concomitant]
     Indication: HYPERTENSION
  7. POTASSIUM [Concomitant]
     Indication: MINERAL SUPPLEMENTATION
  8. ASPIRIN [Concomitant]
     Indication: ROUTINE HEALTH MAINTENANCE

REACTIONS (1)
  - Haematochezia [Not Recovered/Not Resolved]
